FAERS Safety Report 12625155 (Version 1)
Quarter: 2016Q3

REPORT INFORMATION
  Report Type: Spontaneous
  Country: US (occurrence: US)
  Receive Date: 20160805
  Receipt Date: 20160805
  Transmission Date: 20161109
  Serious: Yes (Other)
  Sender: FDA-Public Use
  Company Number: US-PAR PHARMACEUTICAL COMPANIES-2016SCPR015692

PATIENT

DRUGS (20)
  1. PROPOFOL. [Suspect]
     Active Substance: PROPOFOL
     Indication: INDUCTION OF ANAESTHESIA
     Dosage: 30-50 MCG/KG/MIN, UNKNOWN
  2. PROPOFOL. [Suspect]
     Active Substance: PROPOFOL
     Dosage: 0.2-0.5 MG/KG, UNKNOWN
  3. LIDOCAINE. [Suspect]
     Active Substance: LIDOCAINE
     Indication: MAINTENANCE OF ANAESTHESIA
     Dosage: 1.5 MG/KG, UNKNOWN
  4. CISATRACURIUM. [Concomitant]
     Active Substance: CISATRACURIUM
     Indication: MUSCLE RELAXANT THERAPY
     Dosage: UNK, UNKNOWN
     Route: 065
  5. DEXAMETHASONE. [Concomitant]
     Active Substance: DEXAMETHASONE
     Indication: PRODUCT USED FOR UNKNOWN INDICATION
     Dosage: 10 MG, UNKNOWN
     Route: 042
  6. LIDOCAINE. [Suspect]
     Active Substance: LIDOCAINE
     Indication: INDUCTION OF ANAESTHESIA
     Dosage: 2 MG/MIN, UNKNOWN
  7. PREGABALIN. [Suspect]
     Active Substance: PREGABALIN
     Indication: ANTIINFLAMMATORY THERAPY
     Dosage: 75-150, UNKNOWN
     Route: 065
  8. ROCURONIUM [Concomitant]
     Active Substance: ROCURONIUM BROMIDE
     Indication: MUSCLE RELAXANT THERAPY
     Dosage: UNK, UNKNOWN
     Route: 065
  9. BUPIVACAINE HYDROCHLORIDE AND EPINEPHRINE [Concomitant]
     Active Substance: BUPIVACAINE HYDROCHLORIDE\EPINEPHRINE BITARTRATE
     Indication: ANALGESIC THERAPY
     Dosage: BUPIVACAINE 0.075 % WITH EPINEPHRINE 1.5 LG/ML, UNKNOWN
     Route: 008
  10. HYDROMORPHONE [Concomitant]
     Active Substance: HYDROMORPHONE
     Dosage: 5 MCG/ML, UNKNOWN
     Route: 008
  11. KETALAR [Suspect]
     Active Substance: KETAMINE HYDROCHLORIDE
     Indication: MAINTENANCE OF ANAESTHESIA
     Dosage: 10 MG, UNK
  12. PROPOFOL. [Suspect]
     Active Substance: PROPOFOL
     Indication: MAINTENANCE OF ANAESTHESIA
     Dosage: 50-150 MCG/KG/MIN, UNKNOWN
  13. DEXMEDETOMIDINE HYDROCHLORIDE. [Suspect]
     Active Substance: DEXMEDETOMIDINE HYDROCHLORIDE
     Indication: MAINTENANCE OF ANAESTHESIA
  14. HYDROMORPHONE [Concomitant]
     Active Substance: HYDROMORPHONE
     Indication: ANALGESIC THERAPY
     Dosage: 0.6-1 MG, BOLUS
     Route: 008
  15. KETALAR [Suspect]
     Active Substance: KETAMINE HYDROCHLORIDE
     Indication: INDUCTION OF ANAESTHESIA
     Dosage: 10 MG /HR
  16. ACETAMINOPHEN. [Concomitant]
     Active Substance: ACETAMINOPHEN
     Indication: ANALGESIC THERAPY
     Dosage: UNK UNK, UNKNOWN
     Route: 042
  17. TRAMADOL. [Suspect]
     Active Substance: TRAMADOL
     Indication: ANTIINFLAMMATORY THERAPY
     Dosage: 300 MG, UNKNOWN
     Route: 065
  18. CELECOXIB. [Suspect]
     Active Substance: CELECOXIB
     Indication: ANTIINFLAMMATORY THERAPY
     Dosage: 300-400 MG, UNKNOWN
     Route: 065
  19. LIDOCAINE. [Concomitant]
     Active Substance: LIDOCAINE
     Indication: PRODUCT USED FOR UNKNOWN INDICATION
     Dosage: 3-10 ML, UNKNOWN
     Route: 008
  20. DEXMEDETOMIDINE HYDROCHLORIDE. [Suspect]
     Active Substance: DEXMEDETOMIDINE HYDROCHLORIDE
     Indication: INDUCTION OF ANAESTHESIA
     Dosage: 0.3 MCG/KG /HR

REACTIONS (19)
  - Wound infection [Unknown]
  - Urinary tract infection [Unknown]
  - Multi-organ disorder [Unknown]
  - Deep vein thrombosis [Unknown]
  - Pulmonary oedema [Unknown]
  - Ileus [Unknown]
  - Pneumonia [Unknown]
  - Enterocutaneous fistula [Unknown]
  - Blood disorder [Unknown]
  - Pulmonary embolism [Unknown]
  - Respiratory failure [Unknown]
  - Sepsis [Unknown]
  - Arrhythmia [Unknown]
  - Delirium [Unknown]
  - Diarrhoea [Unknown]
  - Vomiting [Unknown]
  - Anastomotic leak [Unknown]
  - Renal disorder [Unknown]
  - Septic shock [Unknown]
